FAERS Safety Report 10094769 (Version 1)
Quarter: 2014Q2

REPORT INFORMATION
  Report Type: Spontaneous
  Country: IT (occurrence: None)
  Receive Date: 20140418
  Receipt Date: 20140418
  Transmission Date: 20141212
  Serious: Yes (Death)
  Sender: FDA-Public Use
  Company Number: 2014IT00377

PATIENT
  Sex: Female

DRUGS (2)
  1. CARBOPLATIN [Suspect]
     Indication: OVARIAN CANCER
     Dosage: AUC 6 MG/ML PER MIN EVERY 3 WEEKS
  2. PACLITAXEL [Suspect]
     Indication: OVARIAN CANCER
     Dosage: EVERY 21 DAYS FOR 6 CYCLES , INTRAVENOUS
     Route: 042

REACTIONS (1)
  - Febrile neutropenia [None]
